FAERS Safety Report 8216315-5 (Version None)
Quarter: 2012Q1

REPORT INFORMATION
  Report Type: 
  Country: None (occurrence: None)
  Receive Date: 20120316
  Receipt Date: 20120308
  Transmission Date: 20120608
  Serious: Yes (Other)
  Sender: FDA-Public Use
  Company Number: PHEH2004US06622

PATIENT
  Sex: Female

DRUGS (18)
  1. PENICILLIN [Concomitant]
  2. COREG [Concomitant]
  3. AREDIA [Suspect]
     Dates: start: 20000307, end: 20020101
  4. VERAPAMIL [Concomitant]
  5. TAMOXIFEN CITRATE [Concomitant]
  6. NOTUSS [Concomitant]
  7. AMARYL [Concomitant]
  8. CALCIUM FOLINATE [Concomitant]
     Dates: start: 19940101
  9. FLAGYL [Concomitant]
  10. ZOMETA [Suspect]
     Indication: BREAST CANCER METASTATIC
     Dosage: 4 MG EVERY 4 WEEKS
     Route: 042
     Dates: start: 20020618
  11. PRINZIDE [Concomitant]
  12. HYDROCODONE BITARTRATE [Concomitant]
  13. LISINOPRIL [Concomitant]
  14. AROMASIN [Concomitant]
     Indication: BREAST CANCER METASTATIC
     Dosage: 25 MG, QD
     Route: 048
     Dates: start: 20010201
  15. XYLOCAIN GEL [Concomitant]
     Indication: LOCAL ANAESTHESIA
     Dates: start: 20040223, end: 20040223
  16. XYLOCAIN GEL [Concomitant]
     Dates: start: 20040322, end: 20040322
  17. NEURONTIN [Concomitant]
  18. CARVEDIL [Concomitant]

REACTIONS (60)
  - OSTEONECROSIS OF JAW [None]
  - URINARY TRACT INFECTION [None]
  - PLEURAL EFFUSION [None]
  - BRONCHITIS [None]
  - TACHYCARDIA [None]
  - DIVERTICULUM INTESTINAL [None]
  - ARTHRALGIA [None]
  - CAROTID BRUIT [None]
  - ORAL CANDIDIASIS [None]
  - HYPOAESTHESIA [None]
  - IMPAIRED HEALING [None]
  - ANXIETY [None]
  - ALVEOLAR OSTEITIS [None]
  - GRAM STAIN POSITIVE [None]
  - VOCAL CORD PARALYSIS [None]
  - VIRAL INFECTION [None]
  - DYSURIA [None]
  - POLLAKIURIA [None]
  - DENTAL CARIES [None]
  - BIOPSY [None]
  - ANHEDONIA [None]
  - HIATUS HERNIA [None]
  - BLADDER DISORDER [None]
  - ACROCHORDON [None]
  - SEBORRHOEIC DERMATITIS [None]
  - BONE DISORDER [None]
  - XANTHOGRANULOMA [None]
  - ACCELERATED HYPERTENSION [None]
  - UTERINE PROLAPSE [None]
  - BONE PAIN [None]
  - CARDIAC FLUTTER [None]
  - OEDEMA PERIPHERAL [None]
  - HERPES ZOSTER [None]
  - HAEMATURIA [None]
  - DEAFNESS [None]
  - MENINGIOMA [None]
  - PNEUMONIA [None]
  - VASOMOTOR RHINITIS [None]
  - BREAST CALCIFICATIONS [None]
  - APHTHOUS STOMATITIS [None]
  - DYSPHONIA [None]
  - INJURY [None]
  - PAIN IN JAW [None]
  - HYPERLIPIDAEMIA [None]
  - RENAL ANEURYSM [None]
  - PALPITATIONS [None]
  - TRIGEMINAL NEURALGIA [None]
  - SEBORRHOEIC KERATOSIS [None]
  - ACTINIC KERATOSIS [None]
  - PAIN [None]
  - DRY MOUTH [None]
  - METASTASES TO BONE [None]
  - GASTROOESOPHAGEAL REFLUX DISEASE [None]
  - CATARACT [None]
  - METASTASES TO LUNG [None]
  - ESCHERICHIA INFECTION [None]
  - SPLENIC ARTERY ANEURYSM [None]
  - CHRONIC SINUSITIS [None]
  - DYSPNOEA [None]
  - NECK PAIN [None]
